FAERS Safety Report 11611645 (Version 1)
Quarter: 2015Q4

REPORT INFORMATION
  Report Type: Report from Study
  Country: BR (occurrence: BR)
  Receive Date: 20151008
  Receipt Date: 20151008
  Transmission Date: 20160304
  Serious: Yes (Other)
  Sender: FDA-Public Use
  Company Number: PHHY2015BR120515

PATIENT
  Sex: Male
  Weight: 120 kg

DRUGS (3)
  1. DIOVAN [Suspect]
     Active Substance: VALSARTAN
     Dosage: UNK
     Route: 065
     Dates: start: 2006, end: 2009
  2. LOSARTAN. [Suspect]
     Active Substance: LOSARTAN
     Indication: HYPERTENSION
     Dosage: 2 DF, BID (ONE IN MORNING AND 1 IN NIGHT)
     Route: 065
     Dates: start: 2009
  3. DIOVAN [Suspect]
     Active Substance: VALSARTAN
     Indication: HYPERTENSION
     Dosage: 2 DF, QD
     Route: 065
     Dates: start: 2006

REACTIONS (5)
  - Nervousness [Unknown]
  - Diabetes mellitus [Unknown]
  - Asthma [Unknown]
  - Blood pressure increased [Unknown]
  - Blindness [Unknown]
